FAERS Safety Report 15108207 (Version 1)
Quarter: 2018Q3

REPORT INFORMATION
  Report Type: Other
  Country: DE (occurrence: DE)
  Receive Date: 20180705
  Receipt Date: 20180705
  Transmission Date: 20181010
  Serious: No
  Sender: FDA-Public Use
  Company Number: DE-LUPIN PHARMACEUTICALS INC.-2018-00905

PATIENT
  Age: 69 Year
  Sex: Female
  Weight: 88 kg

DRUGS (1)
  1. SIMVASTATIN TABLETS [Suspect]
     Active Substance: SIMVASTATIN
     Indication: LIPID METABOLISM DISORDER
     Dosage: 10 MG, QD
     Route: 065

REACTIONS (3)
  - Musculoskeletal discomfort [Recovered/Resolved]
  - Dizziness [Recovered/Resolved]
  - Headache [Recovered/Resolved]

NARRATIVE: CASE EVENT DATE: 20171114
